FAERS Safety Report 26044729 (Version 1)
Quarter: 2025Q4

REPORT INFORMATION
  Report Type: Report from Study
  Country: CA (occurrence: CA)
  Receive Date: 20251114
  Receipt Date: 20251114
  Transmission Date: 20260118
  Serious: Yes (Death)
  Sender: ABBVIE
  Company Number: CA-ABBVIE-6546800

PATIENT
  Age: 92 Year
  Sex: Male

DRUGS (3)
  1. LUPRON [Suspect]
     Active Substance: LEUPROLIDE ACETATE
     Indication: Prostate cancer
     Dosage: FORM STRENGTH: 30 MILLIGRAM
     Route: 030
     Dates: start: 20190204, end: 20201216
  2. LUPRON [Suspect]
     Active Substance: LEUPROLIDE ACETATE
     Route: 030
     Dates: start: 20240711, end: 20250313
  3. LUPRON [Suspect]
     Active Substance: LEUPROLIDE ACETATE
     Dosage: LAST DOSE DATE: 15 JUL 2025
     Route: 030
     Dates: start: 2025

REACTIONS (1)
  - Death [Fatal]

NARRATIVE: CASE EVENT DATE: 20250101
